FAERS Safety Report 16881466 (Version 1)
Quarter: 2019Q4

REPORT INFORMATION
  Report Type: Report from Study
  Country: CN (occurrence: CN)
  Receive Date: 20191003
  Receipt Date: 20191003
  Transmission Date: 20200122
  Serious: Yes (Death)
  Sender: FDA-Public Use
  Company Number: CN-BAYER-2019-174054

PATIENT
  Age: 83 Year
  Sex: Male

DRUGS (3)
  1. MOXIFLOXACIN. [Suspect]
     Active Substance: MOXIFLOXACIN
  2. AMIODARONE [Interacting]
     Active Substance: AMIODARONE
  3. MORPHINE [Concomitant]
     Active Substance: MORPHINE

REACTIONS (4)
  - Contraindicated product administered [None]
  - Electrocardiogram QT prolonged [Fatal]
  - Labelled drug-drug interaction medication error [None]
  - Ventricular fibrillation [Fatal]
